FAERS Safety Report 7512510-9 (Version None)
Quarter: 2011Q2

REPORT INFORMATION
  Report Type: 
  Country: None (occurrence: None)
  Receive Date: 20110520
  Receipt Date: 20110507
  Transmission Date: 20111010
  Serious: Yes (Death)
  Sender: FDA-Public Use
  Company Number: JP-ACCORD-008520

PATIENT
  Age: 60 Year
  Sex: Male

DRUGS (5)
  1. FLUOROURACIL [Suspect]
     Indication: COLON CANCER METASTATIC
     Dates: end: 20090701
  2. IRINOTECAN HCL [Suspect]
     Indication: COLON CANCER METASTATIC
     Dates: end: 20090701
  3. BEVACIZUMAB (BEVACIZUMAB) [Suspect]
     Indication: COLON CANCER METASTATIC
     Dates: end: 20090701
  4. CETUXIMAB (CETUXIMAB) [Suspect]
     Indication: COLON CANCER METASTATIC
     Dates: end: 20090701
  5. LEUCOVORIN (LEUCOVORIN) [Concomitant]

REACTIONS (2)
  - METASTASES TO LUNG [None]
  - NEOPLASM PROGRESSION [None]
